FAERS Safety Report 9641904 (Version 1)
Quarter: 2013Q4

REPORT INFORMATION
  Report Type: Report from Study
  Country: BE (occurrence: BE)
  Receive Date: 20131023
  Receipt Date: 20131023
  Transmission Date: 20140711
  Serious: Yes (Hospitalization)
  Sender: FDA-Public Use
  Company Number: BE-ELI_LILLY_AND_COMPANY-BE201310004358

PATIENT
  Age: 71 Year
  Sex: Female
  Weight: 58 kg

DRUGS (2)
  1. GEMCITABINE HYDROCHLORIDE [Suspect]
     Indication: NON-HODGKIN^S LYMPHOMA
     Dosage: 1540.5 MG, CYCLICAL
     Route: 042
     Dates: start: 20130423
  2. RITUXIMAB [Suspect]
     Indication: NON-HODGKIN^S LYMPHOMA
     Dosage: 577.7 MG, CYCLICAL
     Route: 042
     Dates: start: 20130423

REACTIONS (1)
  - Meningitis [Recovered/Resolved]
